FAERS Safety Report 6105711-8 (Version None)
Quarter: 2009Q1

REPORT INFORMATION
  Report Type: 
  Country: None (occurrence: None)
  Receive Date: 20090304
  Receipt Date: 20090304
  Transmission Date: 20090719
  Serious: Yes (Hospitalization)
  Sender: FDA-Public Use
  Company Number: None

PATIENT
  Age: 26 Year
  Sex: Male
  Weight: 185 kg

DRUGS (5)
  1. TEMODAR [Suspect]
     Indication: GLIOBLASTOMA
     Dosage: 590MG PO X 5 DAYS Q28
     Route: 048
     Dates: start: 20080922
  2. TOPOTECAN 1.25MG/M2 ON DAYS 2 - 6 OF 28 DAY CYCLE [Suspect]
     Indication: GLIOBLASTOMA
     Dosage: 3.5 MG PO X 5 DAYS Q28
     Route: 048
     Dates: start: 20080923
  3. PROTONIX [Concomitant]
  4. KEPPRA [Concomitant]
  5. DEXAMETHASONE [Concomitant]

REACTIONS (5)
  - DYSPHAGIA [None]
  - DYSPNOEA [None]
  - EPIGLOTTITIS [None]
  - HAEMOGLOBIN DECREASED [None]
  - RESPIRATORY TRACT INFECTION [None]
